FAERS Safety Report 12835562 (Version 7)
Quarter: 2017Q2

REPORT INFORMATION
  Report Type: Report from Study
  Country: JP (occurrence: JP)
  Receive Date: 20161011
  Receipt Date: 20170508
  Transmission Date: 20170830
  Serious: Yes (Hospitalization)
  Sender: FDA-Public Use
  Company Number: JP-ROCHE-1837627

PATIENT
  Age: 47 Year
  Sex: Female
  Weight: 49.7 kg

DRUGS (24)
  1. DYDROGESTERONE [Concomitant]
     Active Substance: DYDROGESTERONE
     Indication: MENOPAUSE
     Route: 048
     Dates: start: 20160706
  2. CELECOXIB. [Concomitant]
     Active Substance: CELECOXIB
     Route: 048
     Dates: start: 20131125, end: 20161014
  3. PREDNISOLONE. [Concomitant]
     Active Substance: PREDNISOLONE
     Route: 048
     Dates: start: 20161129
  4. CELECOXIB. [Concomitant]
     Active Substance: CELECOXIB
     Route: 048
     Dates: start: 20150713, end: 20161014
  5. AZATHIOPRINE. [Concomitant]
     Active Substance: AZATHIOPRINE
     Route: 048
     Dates: start: 20161012
  6. RABEPRAZOLE SODIUM. [Concomitant]
     Active Substance: RABEPRAZOLE SODIUM
     Indication: GASTROOESOPHAGEAL REFLUX DISEASE
     Route: 048
     Dates: start: 20141226, end: 20161020
  7. PREDNISOLONE. [Concomitant]
     Active Substance: PREDNISOLONE
     Route: 048
     Dates: start: 20140407, end: 20160830
  8. LEVOFLOXACIN HEMIHYDRATE [Concomitant]
     Active Substance: LEVOFLOXACIN
     Indication: CYSTITIS
     Route: 048
     Dates: start: 20161013, end: 20161017
  9. ELDECALCITOL [Concomitant]
     Active Substance: ELDECALCITOL
     Indication: OSTEOPOROSIS PROPHYLAXIS
     Route: 048
     Dates: start: 20140407
  10. PREDNISOLONE. [Concomitant]
     Active Substance: PREDNISOLONE
     Route: 048
     Dates: start: 20150817, end: 20160830
  11. PREDNISOLONE. [Concomitant]
     Active Substance: PREDNISOLONE
     Route: 048
     Dates: start: 20161109, end: 20161128
  12. KETOPROFEN. [Concomitant]
     Active Substance: KETOPROFEN
     Route: 061
     Dates: start: 20140224
  13. MOSAPRIDE CITRATE [Concomitant]
     Active Substance: MOSAPRIDE CITRATE
     Route: 048
     Dates: start: 20161022
  14. PREDNISOLONE. [Concomitant]
     Active Substance: PREDNISOLONE
     Route: 048
     Dates: start: 20160831, end: 20161108
  15. HERBAL NOS [Concomitant]
     Active Substance: HERBALS
     Route: 048
     Dates: start: 20161014, end: 20161020
  16. TOCILIZUMAB [Suspect]
     Active Substance: TOCILIZUMAB
     Indication: SYSTEMIC SCLERODERMA
     Dosage: DATE OF MOST RECENT DOSE OF BLINDED STUDY DRUG PRIOR TO AE ONSET: 28/SEP/2016, KIT IDENTIFICATION OF
     Route: 058
     Dates: start: 20160706
  17. ENALAPRIL MALEATE. [Concomitant]
     Active Substance: ENALAPRIL MALEATE
     Route: 048
     Dates: start: 20161001
  18. ESTRADIOL. [Concomitant]
     Active Substance: ESTRADIOL
     Indication: MENOPAUSE
     Route: 061
     Dates: start: 20160706
  19. CELECOXIB. [Concomitant]
     Active Substance: CELECOXIB
     Route: 048
     Dates: start: 20161020
  20. TOFISOPAM [Concomitant]
     Active Substance: TOFISOPAM
     Indication: MENOPAUSE
     Route: 048
     Dates: start: 20160803, end: 20161108
  21. VONOPRAZAN FUMARATE [Concomitant]
     Active Substance: VONOPRAZAN FUMURATE
     Route: 048
     Dates: start: 20161020, end: 20161024
  22. DAIKENCHUTO [Concomitant]
     Active Substance: HERBALS
     Route: 048
     Dates: start: 20161014, end: 20161118
  23. HEPARINOID [Concomitant]
     Active Substance: CHONDROITIN SULFATE (BOVINE)
     Indication: DRY SKIN
     Route: 061
     Dates: start: 20160606
  24. MENOAID [Concomitant]
     Indication: MENOPAUSE
     Dosage: DOSE: 1
     Route: 062
     Dates: start: 20161109

REACTIONS (1)
  - Weight decreased [Not Recovered/Not Resolved]

NARRATIVE: CASE EVENT DATE: 20160927
